FAERS Safety Report 12402465 (Version 2)
Quarter: 2016Q2

REPORT INFORMATION
  Report Type: Spontaneous
  Country: US (occurrence: US)
  Receive Date: 20160525
  Receipt Date: 20160527
  Transmission Date: 20160815
  Serious: No
  Sender: FDA-Public Use
  Company Number: US-SA-2016SA043599

PATIENT
  Sex: Male

DRUGS (2)
  1. LANTUS SOLOSTAR [Suspect]
     Active Substance: INSULIN GLARGINE
     Indication: TYPE 1 DIABETES MELLITUS
     Dosage: IN MORNING DOSE:8 UNIT(S)
     Route: 065
  2. LANTUS SOLOSTAR [Suspect]
     Active Substance: INSULIN GLARGINE
     Indication: TYPE 1 DIABETES MELLITUS
     Dosage: IN NIGHT DOSE:10 UNIT(S)
     Route: 065

REACTIONS (6)
  - Malaise [Unknown]
  - Weight decreased [Unknown]
  - Abdominal pain upper [Unknown]
  - Gastrointestinal motility disorder [Unknown]
  - Decreased appetite [Unknown]
  - Drug administration error [Unknown]
